FAERS Safety Report 5978665-2 (Version None)
Quarter: 2008Q4

REPORT INFORMATION
  Report Type: 
  Country: None (occurrence: None)
  Receive Date: 20081204
  Receipt Date: 20081125
  Transmission Date: 20090506
  Serious: Yes (Other)
  Sender: FDA-Public Use
  Company Number: US-AVENTIS-200817199US

PATIENT
  Sex: Female
  Weight: 94.8 kg

DRUGS (4)
  1. LOVENOX [Suspect]
     Indication: DEEP VEIN THROMBOSIS
     Route: 058
     Dates: start: 20081013
  2. LOVENOX [Suspect]
     Indication: PREGNANCY
     Route: 058
     Dates: start: 20081013
  3. PRENATAL VITAMINS                  /01549301/ [Concomitant]
     Indication: PREGNANCY
     Dosage: DOSE: 1 PER DAY
  4. HEPARIN [Concomitant]
     Indication: DEEP VEIN THROMBOSIS
     Dosage: DOSE: 5000 USP
     Route: 058
     Dates: start: 20081009, end: 20081013

REACTIONS (4)
  - ABORTION SPONTANEOUS [None]
  - DRUG EXPOSURE DURING PREGNANCY [None]
  - INJECTION SITE ERYTHEMA [None]
  - INJECTION SITE PRURITUS [None]
